FAERS Safety Report 9269575 (Version 1)
Quarter: 2013Q2

REPORT INFORMATION
  Report Type: Spontaneous
  Country: US (occurrence: US)
  Receive Date: 20130503
  Receipt Date: 20130503
  Transmission Date: 20140414
  Serious: Yes (Other)
  Sender: FDA-Public Use
  Company Number: US-PFIZER INC-2013134915

PATIENT
  Sex: Female

DRUGS (3)
  1. TIKOSYN [Suspect]
     Dosage: UNK
  2. LIPITOR [Suspect]
     Dosage: UNK
  3. SPIRIVA [Suspect]
     Dosage: UNK

REACTIONS (1)
  - Cardiac disorder [Unknown]
